FAERS Safety Report 9739262 (Version 2)
Quarter: 2013Q4

REPORT INFORMATION
  Report Type: Spontaneous
  Country: US (occurrence: US)
  Receive Date: 20131209
  Receipt Date: 20131213
  Transmission Date: 20140711
  Serious: Yes (Hospitalization, Other)
  Sender: FDA-Public Use
  Company Number: US-BAYER-2013-148702

PATIENT
  Age: 40 Year
  Sex: Female
  Weight: 77 kg

DRUGS (12)
  1. YAZ [Suspect]
     Indication: CONTRACEPTION
     Dosage: UNK
     Dates: start: 200802, end: 201106
  2. AMITRIPTYLINE [Concomitant]
     Dosage: 25 MG, EVERY EVENING
     Route: 048
  3. CHLORHEXIDINE [Concomitant]
     Dosage: RINSE MOUTH WITH ONE CAPFUL BID
  4. RETIN-A [Concomitant]
     Dosage: 0.1% QHS
  5. VICODIN [Concomitant]
     Dosage: 5-500 Q 4-6 H (HOURS) PRN
     Route: 048
  6. SUMATRIPTAN [Concomitant]
     Indication: MIGRAINE
     Dosage: 50 MG, UNK
     Route: 048
  7. MAXALT [Concomitant]
     Route: 048
  8. VESICARE [Concomitant]
     Dosage: 5 MG, QD
     Route: 048
  9. ASTEPRO [Concomitant]
     Dosage: 0.15% 2 SPRAYS DAILY
  10. NASONEX [Concomitant]
     Dosage: 2 SPRAYS DAILY
  11. ALIGN [Concomitant]
     Dosage: 1 CAPSULE DAILY
  12. MAGNESIUM [Concomitant]
     Dosage: 500 MG BEDTIME
     Route: 048

REACTIONS (10)
  - Gallbladder disorder [None]
  - Superior sagittal sinus thrombosis [None]
  - Gallbladder disorder [None]
  - Jugular vein thrombosis [None]
  - Injury [None]
  - Pain [None]
  - Emotional distress [None]
  - General physical health deterioration [None]
  - Anxiety [None]
  - Pain [None]
